FAERS Safety Report 24030204 (Version 1)
Quarter: 2024Q2

REPORT INFORMATION
  Report Type: Spontaneous
  Country: CN (occurrence: CN)
  Receive Date: 20240628
  Receipt Date: 20240628
  Transmission Date: 20240716
  Serious: Yes (Hospitalization)
  Sender: FDA-Public Use
  Company Number: CN-FreseniusKabi-FK202409855

PATIENT
  Age: 90 Year
  Sex: Male
  Weight: 60 kg

DRUGS (1)
  1. LACTULOSE [Suspect]
     Active Substance: LACTULOSE
     Indication: Faecal disimpaction
     Dosage: FORM OF  ADMIN: ORAL SOLUTION?START TIME AT 12:00 ON 16JUN2024?STOP TIME: 08:00 ON 17JUN2024
     Route: 048
     Dates: start: 20240616, end: 20240617

REACTIONS (1)
  - Enteritis [Recovering/Resolving]

NARRATIVE: CASE EVENT DATE: 20240617
